FAERS Safety Report 11211875 (Version 1)
Quarter: 2015Q2

REPORT INFORMATION
  Report Type: Spontaneous
  Country: US (occurrence: None)
  Receive Date: 20150622
  Receipt Date: 20150622
  Transmission Date: 20150821
  Serious: Yes (Life-Threatening)
  Sender: FDA-Public Use
  Company Number: None

PATIENT
  Age: 74 Year
  Sex: Male
  Weight: 77.5 kg

DRUGS (1)
  1. HEPARIN [Suspect]
     Active Substance: HEPARIN SODIUM
     Indication: PORTAL VEIN THROMBOSIS
     Dosage: 25000 UNITS
     Route: 042
     Dates: start: 20110618, end: 20110711

REACTIONS (2)
  - Thrombocytopenia [None]
  - Anti-platelet antibody positive [None]

NARRATIVE: CASE EVENT DATE: 20110618
